FAERS Safety Report 25324635 (Version 1)
Quarter: 2025Q2

REPORT INFORMATION
  Report Type: Spontaneous
  Country: TR (occurrence: TR)
  Receive Date: 20250516
  Receipt Date: 20250516
  Transmission Date: 20250717
  Serious: Yes (Other)
  Sender: GILEAD
  Company Number: TR-GILEAD-2025-0713250

PATIENT
  Age: 39 Year
  Sex: Female

DRUGS (1)
  1. TRODELVY [Suspect]
     Active Substance: SACITUZUMAB GOVITECAN-HZIY
     Indication: Hormone receptor positive HER2 negative breast cancer
     Route: 042
     Dates: start: 202305

REACTIONS (3)
  - Disease progression [Unknown]
  - Nausea [Unknown]
  - Fatigue [Unknown]
